FAERS Safety Report 17172114 (Version 1)
Quarter: 2019Q4

REPORT INFORMATION
  Report Type: Spontaneous
  Country: US (occurrence: US)
  Receive Date: 20191218
  Receipt Date: 20191218
  Transmission Date: 20200122
  Serious: No
  Sender: FDA-Public Use
  Company Number: US-AMAG PHARMACEUTICALS, INC.-AMAG201906312

PATIENT
  Age: 62 Year
  Sex: Female
  Weight: 74.91 kg

DRUGS (4)
  1. INTRAROSA [Suspect]
     Active Substance: PRASTERONE
     Indication: ATROPHIC VULVOVAGINITIS
  2. PROGESTIN [Concomitant]
     Active Substance: PROGESTERONE
     Indication: ATROPHIC VULVOVAGINITIS
     Dosage: UNK
  3. PROGESTIN [Concomitant]
     Active Substance: PROGESTERONE
     Indication: DYSPAREUNIA
  4. INTRAROSA [Suspect]
     Active Substance: PRASTERONE
     Indication: DYSPAREUNIA
     Dosage: UNK
     Route: 067
     Dates: start: 20190819, end: 201910

REACTIONS (6)
  - Irritability [Recovered/Resolved]
  - Feeling abnormal [Recovered/Resolved]
  - Off label use [Unknown]
  - Crying [Recovered/Resolved]
  - Hot flush [Not Recovered/Not Resolved]
  - Migraine [Recovered/Resolved]

NARRATIVE: CASE EVENT DATE: 20190819
